FAERS Safety Report 11511301 (Version 1)
Quarter: 2015Q3

REPORT INFORMATION
  Report Type: Spontaneous
  Country: US (occurrence: US)
  Receive Date: 20150915
  Receipt Date: 20150915
  Transmission Date: 20151125
  Serious: Yes (Life-Threatening, Hospitalization, Other)
  Sender: FDA-Public Use
  Company Number: US-009507513-1504USA013011

PATIENT
  Age: 28 Year
  Sex: Male

DRUGS (2)
  1. CUBICIN [Suspect]
     Active Substance: DAPTOMYCIN
     Indication: OSTEOMYELITIS BACTERIAL
     Dosage: 6 MG/KG, UNK
     Route: 042
  2. PIPERACILLIN AND TAZOBACTAM [Concomitant]
     Active Substance: PIPERACILLIN SODIUM\TAZOBACTAM SODIUM
     Indication: OSTEOMYELITIS BACTERIAL
     Dosage: UNK UNK, UNK
     Route: 065

REACTIONS (1)
  - Eosinophilic pneumonia acute [Recovering/Resolving]
